FAERS Safety Report 20151198 (Version 1)
Quarter: 2021Q4

REPORT INFORMATION
  Report Type: Spontaneous
  Country: US (occurrence: None)
  Receive Date: 20211203
  Receipt Date: 20211203
  Transmission Date: 20220304
  Serious: Yes (Life-Threatening, Other)
  Sender: FDA-Public Use
  Company Number: None

PATIENT
  Age: 68 Year
  Sex: Female

DRUGS (1)
  1. PACLITAXEL [Suspect]
     Active Substance: PACLITAXEL

REACTIONS (5)
  - Infusion related reaction [None]
  - Dizziness [None]
  - Hypertension [None]
  - Respiratory rate increased [None]
  - Oxygen saturation decreased [None]

NARRATIVE: CASE EVENT DATE: 20211203
